FAERS Safety Report 5386149-8 (Version None)
Quarter: 2007Q3

REPORT INFORMATION
  Report Type: 
  Country: None (occurrence: None)
  Receive Date: 20070713
  Receipt Date: 20070703
  Transmission Date: 20080115
  Serious: Yes (Death, Hospitalization)
  Sender: FDA-Public Use
  Company Number: ES-JNJFOC-20070601288

PATIENT
  Age: 62 Year
  Sex: Female

DRUGS (4)
  1. REMICADE [Suspect]
     Indication: ANKYLOSING SPONDYLITIS
     Route: 042
  2. SINTROM [Concomitant]
     Indication: ANTICOAGULANT THERAPY
  3. EMCORETIC [Concomitant]
     Indication: ANTICOAGULANT THERAPY
  4. ACETAMINOPHEN AND TRAMADOL HCL [Concomitant]
     Indication: PAIN

REACTIONS (2)
  - ACUTE HEPATIC FAILURE [None]
  - HEPATIC NEOPLASM [None]
